FAERS Safety Report 22018367 (Version 1)
Quarter: 2023Q1

REPORT INFORMATION
  Report Type: Spontaneous
  Country: JP (occurrence: JP)
  Receive Date: 20230221
  Receipt Date: 20230221
  Transmission Date: 20230418
  Serious: Yes (Other)
  Sender: FDA-Public Use
  Company Number: JP-SAKK-01496188

PATIENT

DRUGS (1)
  1. ENJAYMO [Suspect]
     Active Substance: SUTIMLIMAB-JOME
     Indication: Product used for unknown indication
     Route: 041

REACTIONS (4)
  - Haemorrhage urinary tract [Unknown]
  - Haematuria [Unknown]
  - Anaemia [Unknown]
  - Renal disorder [Unknown]

NARRATIVE: CASE EVENT DATE: 20230201
